FAERS Safety Report 23051385 (Version 5)
Quarter: 2023Q4

REPORT INFORMATION
  Report Type: Report from Study
  Country: JP (occurrence: JP)
  Receive Date: 20231010
  Receipt Date: 20231108
  Transmission Date: 20240110
  Serious: Yes (Hospitalization)
  Sender: FDA-Public Use
  Company Number: JP-GILEAD-2023-0646679

PATIENT
  Sex: Female
  Weight: 40.5 kg

DRUGS (36)
  1. SACITUZUMAB GOVITECAN-HZIY [Suspect]
     Active Substance: SACITUZUMAB GOVITECAN-HZIY
     Indication: Triple negative breast cancer
     Dosage: 404 MG, 10 MG/KG ON DAYS 1 AND 8 OF 21-DAY CYCLES
     Route: 042
     Dates: start: 20230915, end: 20230915
  2. SACITUZUMAB GOVITECAN-HZIY [Suspect]
     Active Substance: SACITUZUMAB GOVITECAN-HZIY
     Dosage: 404 MG
     Route: 042
     Dates: start: 20230921, end: 20230921
  3. SACITUZUMAB GOVITECAN-HZIY [Suspect]
     Active Substance: SACITUZUMAB GOVITECAN-HZIY
     Dosage: 404 MG
     Route: 042
     Dates: start: 20231004, end: 20231004
  4. SACITUZUMAB GOVITECAN-HZIY [Suspect]
     Active Substance: SACITUZUMAB GOVITECAN-HZIY
     Dosage: 290 MG
     Route: 042
     Dates: start: 20231018, end: 20231018
  5. PEMBROLIZUMAB [Suspect]
     Active Substance: PEMBROLIZUMAB
     Indication: Triple negative breast cancer
     Dosage: 200 MG, DAY 1 OF 21-DAY CYCLES
     Route: 042
     Dates: start: 20230915, end: 20230915
  6. PEMBROLIZUMAB [Suspect]
     Active Substance: PEMBROLIZUMAB
     Dosage: 200 MG
     Route: 042
     Dates: start: 20231004, end: 20231004
  7. VONOPRAZAN FUMARATE [Concomitant]
     Active Substance: VONOPRAZAN FUMARATE
     Indication: Irritable bowel syndrome
     Dosage: UNK
     Route: 048
     Dates: start: 20191029
  8. RIKKUNSHITO [ATRACTYLODES LANCEA RHIZOME;CITRUS X AURANTIUM PEEL;GLYCY [Concomitant]
     Dosage: UNK
     Dates: start: 20190917
  9. MOSAPRIDE CITRATE DIHYDRATE [Concomitant]
     Active Substance: MOSAPRIDE CITRATE DIHYDRATE
     Dosage: UNK
     Dates: start: 20181227
  10. PREDNISOLONE VALERATE ACETATE [Concomitant]
     Active Substance: PREDNISOLONE VALERATE ACETATE
     Indication: Dry skin
     Dosage: UNK
     Route: 061
     Dates: start: 20191213
  11. DEXAMETHASONE [Concomitant]
     Active Substance: DEXAMETHASONE
     Indication: Stomatitis
     Dosage: UNK
     Route: 050
     Dates: start: 1990
  12. DENOSUMAB [Concomitant]
     Active Substance: DENOSUMAB
     Indication: Prophylaxis
     Dosage: UNK
     Route: 058
     Dates: start: 20230824
  13. ACETAMINOPHEN [Concomitant]
     Active Substance: ACETAMINOPHEN
     Indication: Musculoskeletal pain
     Dosage: UNK
     Route: 048
     Dates: start: 20230816, end: 20230916
  14. ACETAMINOPHEN [Concomitant]
     Active Substance: ACETAMINOPHEN
     Indication: Tumour pain
     Dosage: UNK
     Route: 048
     Dates: start: 20230915
  15. ACETAMINOPHEN [Concomitant]
     Active Substance: ACETAMINOPHEN
     Indication: Prophylaxis
     Dosage: UNK
     Route: 048
     Dates: start: 20231007, end: 20231009
  16. ACETAMINOPHEN [Concomitant]
     Active Substance: ACETAMINOPHEN
     Dosage: UNK
     Route: 048
     Dates: start: 20231022
  17. ACETAMINOPHEN [Concomitant]
     Active Substance: ACETAMINOPHEN
     Dosage: UNK
     Route: 042
     Dates: start: 20231022, end: 20231022
  18. CALCIUM CARBONATE\CHOLECALCIFEROL\MAGNESIUM CARBONATE [Concomitant]
     Active Substance: CALCIUM CARBONATE\CHOLECALCIFEROL\MAGNESIUM CARBONATE
     Dosage: UNK
     Dates: start: 20230825
  19. LEMBOREXANT [Concomitant]
     Active Substance: LEMBOREXANT
     Indication: Insomnia
     Dosage: UNK
     Route: 048
     Dates: start: 20230824
  20. PROCHLORPERAZINE MALEATE [Concomitant]
     Active Substance: PROCHLORPERAZINE MALEATE
     Indication: Anxiety disorder
     Dosage: UNK
     Route: 048
     Dates: start: 20230824, end: 20230920
  21. MEFENAMIC ACID [Concomitant]
     Active Substance: MEFENAMIC ACID
     Indication: Pharynx radiation injury
     Dosage: UNK
     Route: 048
     Dates: start: 20230906, end: 20230916
  22. SODIUM ALGINATE [Concomitant]
     Active Substance: SODIUM ALGINATE
     Dosage: UNK
     Dates: start: 20230906, end: 20230913
  23. TRAMADOL HYDROCHLORIDE [Concomitant]
     Active Substance: TRAMADOL HYDROCHLORIDE
     Indication: Tumour pain
     Dosage: UNK
     Route: 048
     Dates: start: 20230825
  24. DIPHENHYDRAMINE [Concomitant]
     Active Substance: DIPHENHYDRAMINE
     Indication: Prophylaxis
     Dosage: UNK
     Route: 048
     Dates: start: 20230915
  25. PALONOSETRON HYDROCHLORIDE [Concomitant]
     Active Substance: PALONOSETRON HYDROCHLORIDE
     Indication: Prophylaxis
     Dosage: UNK
     Route: 042
     Dates: start: 20230915
  26. DEXAMETHASONE SODIUM PHOSPHATE [Concomitant]
     Active Substance: DEXAMETHASONE SODIUM PHOSPHATE
     Indication: Prophylaxis
     Dosage: UNK
     Route: 042
     Dates: start: 20230915
  27. FAMOTIDINE [Concomitant]
     Active Substance: FAMOTIDINE
     Indication: Prophylaxis
     Dosage: UNK
     Route: 042
     Dates: start: 20230915
  28. OLANZAPINE [Concomitant]
     Active Substance: OLANZAPINE
     Indication: Vomiting
     Dosage: UNK
     Route: 048
     Dates: start: 20230921
  29. 1,4-DIMETHYL-7-ISOPROPYLAZULENE [Concomitant]
     Dosage: UNK
     Dates: start: 20230921
  30. AZ COMBINATION [Concomitant]
     Dosage: UNK
     Dates: start: 20230921
  31. GRANISETRON HYDROCHLORIDE [Concomitant]
     Active Substance: GRANISETRON HYDROCHLORIDE
     Indication: Vomiting
     Dosage: UNK
     Route: 048
     Dates: start: 20230921
  32. FOSNETUPITANT CHLORIDE HYDROCHLORIDE [Concomitant]
     Active Substance: FOSNETUPITANT CHLORIDE HYDROCHLORIDE
     Dosage: UNK
     Dates: start: 20230921
  33. GLYCERIN [Concomitant]
     Active Substance: GLYCERIN
     Indication: Constipation
     Route: 054
     Dates: start: 20230923, end: 20230923
  34. AMINO ACIDS\DEXTROSE\ELECTROLYTES NOS\VITAMINS [Concomitant]
     Active Substance: AMINO ACIDS\DEXTROSE\ELECTROLYTES NOS\VITAMINS
     Indication: Decreased appetite
     Route: 042
     Dates: start: 20231008, end: 20231012
  35. AMINO ACIDS\DEXTROSE\ELECTROLYTES NOS\VITAMINS [Concomitant]
     Active Substance: AMINO ACIDS\DEXTROSE\ELECTROLYTES NOS\VITAMINS
     Dosage: UNK
     Route: 042
     Dates: start: 20231022, end: 20231022
  36. SOLDEM 3A [Concomitant]
     Active Substance: CARBOHYDRATES\POTASSIUM CHLORIDE\SODIUM CHLORIDE\SODIUM LACTATE
     Indication: Decreased appetite
     Route: 042
     Dates: start: 20231013, end: 20231013

REACTIONS (2)
  - Musculoskeletal pain [Recovered/Resolved]
  - Musculoskeletal pain [Recovered/Resolved]

NARRATIVE: CASE EVENT DATE: 20231007
